FAERS Safety Report 25104102 (Version 1)
Quarter: 2025Q1

REPORT INFORMATION
  Report Type: Report from Study
  Country: TW (occurrence: TW)
  Receive Date: 20250321
  Receipt Date: 20250321
  Transmission Date: 20250409
  Serious: Yes (Other)
  Sender: ROCHE
  Company Number: TW-002147023-NVSC2022TW285206

PATIENT
  Age: 73 Year
  Sex: Female

DRUGS (1)
  1. LUCENTIS [Suspect]
     Active Substance: RANIBIZUMAB
     Indication: Neovascular age-related macular degeneration
     Route: 047
     Dates: start: 202110

REACTIONS (8)
  - Subretinal fluid [Unknown]
  - Retinal pigment epithelium change [Unknown]
  - Retinal thickening [Unknown]
  - Retinal exudates [Unknown]
  - Visual acuity reduced [Unknown]
  - Vision blurred [Unknown]
  - Optical coherence tomography abnormal [Unknown]
  - Colour vision tests abnormal [Unknown]

NARRATIVE: CASE EVENT DATE: 20221110
